FAERS Safety Report 26083696 (Version 1)
Quarter: 2025Q4

REPORT INFORMATION
  Report Type: Spontaneous
  Country: US (occurrence: US)
  Receive Date: 20251124
  Receipt Date: 20251124
  Transmission Date: 20260118
  Serious: Yes (Hospitalization, Other)
  Sender: NOVO NORDISK
  Company Number: US-NOVOPROD-731143

PATIENT
  Sex: Female

DRUGS (1)
  1. TRESIBA [Suspect]
     Active Substance: INSULIN DEGLUDEC
     Indication: Diabetes mellitus
     Dosage: 60 IU
     Route: 058

REACTIONS (8)
  - Cardiac failure congestive [Unknown]
  - Nephropathy [Unknown]
  - Graves^ disease [Unknown]
  - Angina pectoris [Unknown]
  - Coronavirus pneumonia [Unknown]
  - Swelling [Unknown]
  - Swelling [Unknown]
  - Blood glucose decreased [Recovered/Resolved]

NARRATIVE: CASE EVENT DATE: 20190301
